FAERS Safety Report 7390964-9 (Version None)
Quarter: 2011Q2

REPORT INFORMATION
  Report Type: 
  Country: None (occurrence: None)
  Receive Date: 20110404
  Receipt Date: 20110330
  Transmission Date: 20111010
  Serious: No
  Sender: FDA-Public Use
  Company Number: US-PFIZER INC-2011071911

PATIENT
  Sex: Female
  Weight: 67.1 kg

DRUGS (2)
  1. LIPITOR [Suspect]
     Indication: BLOOD CHOLESTEROL INCREASED
     Dosage: 10 MG, 1X/DAY
     Dates: end: 20101001
  2. PRINIVIL [Suspect]
     Dosage: UNK

REACTIONS (2)
  - RASH [None]
  - HAIR DISORDER [None]
